FAERS Safety Report 15353682 (Version 6)
Quarter: 2019Q4

REPORT INFORMATION
  Report Type: Spontaneous
  Country: IN (occurrence: IN)
  Receive Date: 20180905
  Receipt Date: 20191212
  Transmission Date: 20200122
  Serious: Yes (Death, Hospitalization, Other)
  Sender: FDA-Public Use
  Company Number: IN-BIOMARINAP-IN-2018-119625

PATIENT
  Age: 6 Year
  Sex: Male

DRUGS (2)
  1. ALDURAZYME [Suspect]
     Active Substance: LARONIDASE
     Indication: MUCOPOLYSACCHARIDOSIS I
     Dosage: UNK
     Route: 041
     Dates: start: 20130917
  2. ALDURAZYME [Suspect]
     Active Substance: LARONIDASE
     Dosage: UNK UNK, QW
     Route: 041
     Dates: start: 20180514

REACTIONS (12)
  - Dyspnoea [Recovered/Resolved]
  - Hydrocephalus [Unknown]
  - Nasopharyngitis [Unknown]
  - Blindness [Unknown]
  - Aphasia [Unknown]
  - Pain [Unknown]
  - Death [Fatal]
  - Injury [Unknown]
  - Pneumonia [Unknown]
  - Dyspnoea [Unknown]
  - Fall [Unknown]
  - Asthenia [Unknown]

NARRATIVE: CASE EVENT DATE: 201808
